FAERS Safety Report 8995318 (Version 2)
Quarter: 2013Q1

REPORT INFORMATION
  Report Type: Spontaneous
  Country: US (occurrence: US)
  Receive Date: 20130103
  Receipt Date: 20130123
  Transmission Date: 20140127
  Serious: Yes (Other)
  Sender: FDA-Public Use
  Company Number: US-ELI_LILLY_AND_COMPANY-US201211009517

PATIENT
  Sex: Female
  Weight: 92.97 kg

DRUGS (13)
  1. EFFIENT [Suspect]
     Indication: STENT PLACEMENT
     Dosage: 10 MG, QD
     Route: 048
     Dates: start: 201209, end: 20121127
  2. ALBUTEROL [Concomitant]
  3. ATIVAN [Concomitant]
  4. CELEXA [Concomitant]
  5. COREG [Concomitant]
  6. IRON [Concomitant]
  7. LISINOPRIL [Concomitant]
  8. METFORMIN [Concomitant]
  9. PRILOSEC [Concomitant]
  10. PRAVACHOL [Concomitant]
  11. SPIRIVA [Concomitant]
  12. VENTOLIN                                /SCH/ [Concomitant]
  13. ASA [Concomitant]
     Dosage: 81 MG, QD

REACTIONS (2)
  - Gastrointestinal haemorrhage [Recovered/Resolved]
  - Gastritis [Recovered/Resolved]
